FAERS Safety Report 15859024 (Version 1)
Quarter: 2019Q1

REPORT INFORMATION
  Report Type: Spontaneous
  Country: JP (occurrence: JP)
  Receive Date: 20190123
  Receipt Date: 20190123
  Transmission Date: 20190417
  Serious: Yes (Other)
  Sender: FDA-Public Use
  Company Number: JP-GLAXOSMITHKLINE-JP2019JPN007113

PATIENT
  Age: 36 Year
  Sex: Female

DRUGS (2)
  1. ZOVIRAX [Suspect]
     Active Substance: ACYCLOVIR
     Indication: NECROTISING RETINITIS
     Dosage: UNK
     Route: 041
  2. ZOVIRAX [Suspect]
     Active Substance: ACYCLOVIR
     Indication: VARICELLA ZOSTER VIRUS INFECTION

REACTIONS (5)
  - Retinopathy proliferative [Unknown]
  - Live birth [Unknown]
  - Retinal tear [Recovered/Resolved]
  - Exposure during pregnancy [Unknown]
  - Rhegmatogenous retinal detachment [Recovered/Resolved]
